FAERS Safety Report 8001770 (Version 3)
Quarter: 2013Q3

REPORT INFORMATION
  Report Type: Spontaneous
  Country: US (occurrence: US)
  Receive Date: 20110622
  Receipt Date: 20130823
  Transmission Date: 20140515
  Serious: Yes (Other)
  Sender: FDA-Public Use
  Company Number: US-ROCHE-783313

PATIENT
  Sex: Male
  Weight: 99.88 kg

DRUGS (2)
  1. ACCUTANE [Suspect]
     Indication: ACNE
     Dosage: DOSE FORM: PILLS
     Route: 048
     Dates: start: 199402, end: 199512
  2. ACCUTANE [Suspect]
     Route: 048
     Dates: start: 200309, end: 200408

REACTIONS (5)
  - Crohn^s disease [Unknown]
  - Colitis ulcerative [Unknown]
  - Inflammatory bowel disease [Unknown]
  - Gastrointestinal disorder [Unknown]
  - Anxiety [Unknown]
